FAERS Safety Report 15028348 (Version 1)
Quarter: 2018Q2

REPORT INFORMATION
  Report Type: Spontaneous
  Country: RS (occurrence: RS)
  Receive Date: 20180619
  Receipt Date: 20180619
  Transmission Date: 20180711
  Serious: Yes (Hospitalization)
  Sender: FDA-Public Use
  Company Number: RS-NOVAST LABORATORIES, LTD-RS-2018NOV000218

PATIENT
  Age: 27 Year
  Sex: Female

DRUGS (4)
  1. CARISOPRODOL\ASPIRIN [Suspect]
     Active Substance: ASPIRIN\CARISOPRODOL
     Indication: TOOTHACHE
     Dosage: UNK
  2. PARACETAMOL [Concomitant]
     Active Substance: ACETAMINOPHEN
     Indication: TOOTHACHE
     Dosage: UNK
  3. NIMESULIDE [Suspect]
     Active Substance: NIMESULIDE
     Indication: TOOTHACHE
     Dosage: UNK
  4. IBUPROFEN. [Suspect]
     Active Substance: IBUPROFEN
     Indication: TOOTHACHE
     Dosage: UNK

REACTIONS (1)
  - Systemic mastocytosis [Unknown]
